FAERS Safety Report 7179132-3 (Version None)
Quarter: 2010Q4

REPORT INFORMATION
  Report Type: 
  Country: None (occurrence: None)
  Receive Date: 20101221
  Receipt Date: 20101213
  Transmission Date: 20110411
  Serious: No
  Sender: FDA-Public Use
  Company Number: US-PFIZER INC-2010171268

PATIENT
  Age: 49 Year
  Sex: Male
  Weight: 76.4 kg

DRUGS (3)
  1. ZITHROMAX [Suspect]
     Indication: PHARYNGITIS
     Dosage: UNK
     Route: 048
     Dates: start: 20101111, end: 20101101
  2. CICLESONIDE [Suspect]
     Indication: MULTIPLE ALLERGIES
     Dosage: 200 UG, 2X/DAY
     Route: 045
     Dates: start: 20101111, end: 20101101
  3. PHENYLEPHRINE [Concomitant]
     Dosage: UNK
     Route: 045
     Dates: end: 20101101

REACTIONS (1)
  - NASAL CONGESTION [None]
